FAERS Safety Report 6148261-5 (Version None)
Quarter: 2009Q2

REPORT INFORMATION
  Report Type: 
  Country: None (occurrence: None)
  Receive Date: 20090403
  Receipt Date: 20080303
  Transmission Date: 20091009
  Serious: Yes (Hospitalization)
  Sender: FDA-Public Use
  Company Number: 20080053

PATIENT
  Age: 52 Year
  Sex: Female

DRUGS (1)
  1. DEXFERRUM [Suspect]
     Dates: start: 20070101

REACTIONS (1)
  - UNEVALUABLE EVENT [None]
